FAERS Safety Report 12940362 (Version 1)
Quarter: 2016Q4

REPORT INFORMATION
  Report Type: Spontaneous
  Country: US (occurrence: US)
  Receive Date: 20161115
  Receipt Date: 20161115
  Transmission Date: 20170207
  Serious: No
  Sender: FDA-Public Use
  Company Number: None

PATIENT
  Sex: Female
  Weight: 47.25 kg

DRUGS (3)
  1. METOPROLOL. [Suspect]
     Active Substance: METOPROLOL
     Indication: HYPERTENSION
     Dosage: ?          QUANTITY:1 TABLET(S);?
     Route: 048
  2. NATURE^S BOUNTY HAIR, SKIN + NEALS ONE A DAY VITAMINS FOR SENIORS [Concomitant]
  3. MINOXIDILL [Concomitant]

REACTIONS (1)
  - Alopecia [None]
